FAERS Safety Report 4604210-X (Version None)
Quarter: 2005Q1

REPORT INFORMATION
  Report Type: 
  Country: None (occurrence: None)
  Receive Date: 20050308
  Receipt Date: 20050223
  Transmission Date: 20050727
  Serious: Yes (Other)
  Sender: FDA-Public Use
  Company Number: 2005036899

PATIENT
  Sex: Female

DRUGS (2)
  1. ZYVOX [Suspect]
     Indication: STAPHYLOCOCCAL INFECTION
     Dosage: 600 MG (100 MG, 1ST INJECTION), INTRAVEOUS
     Route: 042
     Dates: start: 20050201, end: 20050223
  2. SERTRALINE HCL [Concomitant]

REACTIONS (2)
  - HYPERSENSITIVITY [None]
  - PYREXIA [None]
